FAERS Safety Report 10706368 (Version 1)
Quarter: 2015Q1

REPORT INFORMATION
  Report Type: Spontaneous
  Country: FR (occurrence: None)
  Receive Date: 20150109
  Receipt Date: 20150109
  Transmission Date: 20150721
  Serious: Yes (Death)
  Sender: FDA-Public Use
  Company Number: BDSI-14-AE-007

PATIENT
  Age: 40 Year
  Sex: Male

DRUGS (5)
  1. 7-AMINOCLONAZEPAM [Suspect]
     Active Substance: CLONAZEPAM
  2. OXAZEPAM. [Suspect]
     Active Substance: OXAZEPAM
  3. ETHANOL [Suspect]
     Active Substance: ALCOHOL
  4. MARIJUANA [Concomitant]
     Active Substance: CANNABIS SATIVA SUBSP. INDICA TOP
  5. BUPRENORPHINE [Suspect]
     Active Substance: BUPRENORPHINE

REACTIONS (6)
  - Blood alcohol increased [None]
  - Fatigue [None]
  - Pulmonary oedema [None]
  - Potentiating drug interaction [None]
  - Brain oedema [None]
  - Asphyxia [None]
